FAERS Safety Report 4861882-2 (Version None)
Quarter: 2005Q4

REPORT INFORMATION
  Report Type: 
  Country: None (occurrence: None)
  Receive Date: 20051129
  Receipt Date: 20050729
  Transmission Date: 20060501
  Serious: No
  Sender: FDA-Public Use
  Company Number: WAES 0508USA00082

PATIENT
  Age: 75 Year
  Sex: Female

DRUGS (5)
  1. ZETIA [Suspect]
     Indication: BLOOD CHOLESTEROL INCREASED
     Dosage: 10 MG DAILY PO
     Route: 048
     Dates: start: 20031101, end: 20040101
  2. PRAVACHOL [Suspect]
     Route: 065
  3. ACTONEL [Concomitant]
  4. ATACAND [Concomitant]
  5. TENORMIN [Concomitant]

REACTIONS (2)
  - MUSCLE SPASMS [None]
  - NECK PAIN [None]
